FAERS Safety Report 8800138 (Version 2)
Quarter: 2014Q3

REPORT INFORMATION
  Report Type: Report from Study
  Country: US (occurrence: US)
  Receive Date: 20120921
  Receipt Date: 20140826
  Transmission Date: 20150326
  Serious: Yes (Death, Other)
  Sender: FDA-Public Use
  Company Number: US-ROCHE-1126115

PATIENT
  Sex: Female
  Weight: 79.54 kg

DRUGS (4)
  1. AVASTIN [Suspect]
     Active Substance: BEVACIZUMAB
     Indication: NON-SMALL CELL LUNG CANCER
  2. AVASTIN [Suspect]
     Active Substance: BEVACIZUMAB
     Indication: LUNG NEOPLASM MALIGNANT
     Dosage: 400 MG OR 800 MG
     Route: 065
  3. PEMETREXED [Concomitant]
     Active Substance: PEMETREXED
  4. AVASTIN [Suspect]
     Active Substance: BEVACIZUMAB
     Indication: METASTASES TO LIVER

REACTIONS (3)
  - Death [Fatal]
  - Malignant pleural effusion [Unknown]
  - Metastases to kidney [Unknown]
